FAERS Safety Report 25904449 (Version 2)
Quarter: 2025Q4

REPORT INFORMATION
  Report Type: Report from Study
  Country: EU (occurrence: None)
  Receive Date: 20251010
  Receipt Date: 20251209
  Transmission Date: 20260118
  Serious: Yes (Other)
  Sender: Unknown Manufacturer
  Company Number: EU-CTRS-202500291

PATIENT
  Age: 6 Decade
  Sex: Female

DRUGS (1)
  1. SIKLOS [Suspect]
     Active Substance: HYDROXYUREA
     Indication: Sickle cell anaemia with crisis
     Dates: start: 2014

REACTIONS (1)
  - Renal cancer [Recovered/Resolved]

NARRATIVE: CASE EVENT DATE: 20230530
